FAERS Safety Report 7133254-1 (Version None)
Quarter: 2010Q4

REPORT INFORMATION
  Report Type: 
  Country: None (occurrence: None)
  Receive Date: 20101202
  Receipt Date: 20101124
  Transmission Date: 20110411
  Serious: Yes (Other)
  Sender: FDA-Public Use
  Company Number: JP-ABBOTT-10P-087-0676363-00

PATIENT
  Age: 65 Year
  Sex: Female
  Weight: 35 kg

DRUGS (10)
  1. KLARICID [Suspect]
     Indication: ATYPICAL MYCOBACTERIAL INFECTION
     Route: 048
     Dates: start: 20050209
  2. KLARICID [Interacting]
     Indication: BRONCHOPULMONARY ASPERGILLOSIS
  3. RIFABUTIN [Interacting]
     Indication: MYCOBACTERIAL INFECTION
     Dates: start: 20081212, end: 20090209
  4. RIFABUTIN [Interacting]
     Indication: BRONCHOPULMONARY ASPERGILLOSIS
  5. LEVOFLOXACIN [Concomitant]
     Indication: PRODUCT USED FOR UNKNOWN INDICATION
     Dates: start: 20081212
  6. STREPTOMYCIN [Concomitant]
     Indication: PRODUCT USED FOR UNKNOWN INDICATION
     Route: 030
     Dates: start: 20081212
  7. ITRACONAZOLE [Concomitant]
     Indication: PRODUCT USED FOR UNKNOWN INDICATION
     Dates: start: 20080501
  8. ITRACONAZOLE [Concomitant]
     Route: 048
     Dates: start: 20081212
  9. FLUCYTOSINE [Concomitant]
     Indication: PRODUCT USED FOR UNKNOWN INDICATION
     Route: 048
     Dates: start: 20081212
  10. ETHAMBUTOL HYDROCHLORIDE [Concomitant]
     Indication: MYCOBACTERIAL INFECTION
     Dates: start: 20040101

REACTIONS (2)
  - DRUG INTERACTION [None]
  - UVEITIS [None]
